FAERS Safety Report 8046461-0 (Version None)
Quarter: 2012Q1

REPORT INFORMATION
  Report Type: 
  Country: None (occurrence: None)
  Receive Date: 20120113
  Receipt Date: 20110916
  Transmission Date: 20120608
  Serious: Yes (Hospitalization)
  Sender: FDA-Public Use
  Company Number: BE-ASTRAZENECA-2011SE55860

PATIENT
  Age: 12024 Day
  Sex: Male
  Weight: 100 kg

DRUGS (7)
  1. SEROQUEL [Suspect]
     Route: 048
     Dates: start: 20110902, end: 20110905
  2. CLONAZEPAM [Concomitant]
  3. PANTOPRAZOLE [Concomitant]
  4. SEROQUEL [Suspect]
     Indication: MAJOR DEPRESSION
     Route: 048
     Dates: start: 20110831, end: 20110905
  5. FLUTICASONE PROPIONATE/SALMETEROL [Concomitant]
  6. PAROXETINE HCL [Concomitant]
  7. MONTELUKAST [Concomitant]

REACTIONS (2)
  - CONSTIPATION [None]
  - URINARY RETENTION [None]
